FAERS Safety Report 8358099-6 (Version None)
Quarter: 2012Q2

REPORT INFORMATION
  Report Type: 
  Country: None (occurrence: None)
  Receive Date: 20120514
  Receipt Date: 20120508
  Transmission Date: 20120825
  Serious: Yes (Hospitalization, Other)
  Sender: FDA-Public Use
  Company Number: DE-ABBOTT-11P-062-0708865-00

PATIENT
  Age: 21 Year
  Sex: Female
  Weight: 62 kg

DRUGS (2)
  1. HUMIRA [Suspect]
     Route: 058
     Dates: start: 20100914, end: 20111001
  2. HUMIRA [Suspect]
     Indication: CROHN'S DISEASE
     Route: 058
     Dates: start: 20101201

REACTIONS (3)
  - GASTRITIS [None]
  - CROHN'S DISEASE [None]
  - ABDOMINAL PAIN [None]
